FAERS Safety Report 24754830 (Version 1)
Quarter: 2024Q4

REPORT INFORMATION
  Report Type: Spontaneous
  Country: US (occurrence: US)
  Receive Date: 20241219
  Receipt Date: 20241219
  Transmission Date: 20250115
  Serious: No
  Sender: MYLAN
  Company Number: US-MYLANLABS-2024M1111878

PATIENT
  Sex: Female

DRUGS (1)
  1. NEURONTIN [Suspect]
     Active Substance: GABAPENTIN
     Indication: Spinal pain
     Dosage: 300 MILLIGRAM, BID (TAKE 1 CAPSULE (300 MG TOTAL) BY MOUTH 2 (TWO) TIMES A DAY)
     Route: 048

REACTIONS (1)
  - Off label use [Unknown]
